FAERS Safety Report 14710892 (Version 2)
Quarter: 2018Q3

REPORT INFORMATION
  Report Type: Spontaneous
  Country: US (occurrence: US)
  Receive Date: 20180403
  Receipt Date: 20180727
  Transmission Date: 20181010
  Serious: No
  Sender: FDA-Public Use
  Company Number: US-BAUSCH-BL-2017-007941

PATIENT
  Sex: Male

DRUGS (3)
  1. RENOVA [Suspect]
     Active Substance: TRETINOIN
     Indication: THERAPEUTIC SKIN CARE TOPICAL
  2. RENOVA [Suspect]
     Active Substance: TRETINOIN
     Indication: OFF LABEL USE
  3. RENOVA [Suspect]
     Active Substance: TRETINOIN
     Indication: PSEUDOFOLLICULITIS BARBAE
     Dosage: APPLIED TWICE
     Route: 061
     Dates: start: 20170322, end: 20170323

REACTIONS (2)
  - Drug ineffective for unapproved indication [Recovered/Resolved]
  - Product quality issue [Unknown]

NARRATIVE: CASE EVENT DATE: 20170322
